FAERS Safety Report 24853182 (Version 8)
Quarter: 2025Q4

REPORT INFORMATION
  Report Type: Report from Study
  Country: EU (occurrence: EU)
  Receive Date: 20250117
  Receipt Date: 20251212
  Transmission Date: 20260117
  Serious: Yes (Other)
  Sender: EXELIXIS
  Company Number: EU-IPSEN Group, Research and Development-2024-19822

PATIENT

DRUGS (31)
  1. CABOZANTINIB [Suspect]
     Active Substance: CABOZANTINIB
     Indication: Renal cell carcinoma
     Dosage: 40 MG, QD
     Route: 048
     Dates: start: 20240823, end: 20241002
  2. CABOZANTINIB [Suspect]
     Active Substance: CABOZANTINIB
     Dosage: 40 MG DAILY
     Route: 048
     Dates: start: 20241029, end: 20241118
  3. CABOZANTINIB [Suspect]
     Active Substance: CABOZANTINIB
     Dosage: 20 MG DAILY
     Route: 048
     Dates: start: 20241217, end: 20241224
  4. CABOZANTINIB [Suspect]
     Active Substance: CABOZANTINIB
     Dosage: 20 MG EVERY OTHER DAY
     Route: 048
     Dates: start: 20241225, end: 20250107
  5. CABOZANTINIB [Suspect]
     Active Substance: CABOZANTINIB
     Dosage: 20 MG EVERY OTHER DAY
     Route: 048
     Dates: start: 20250114, end: 20250302
  6. CABOZANTINIB [Suspect]
     Active Substance: CABOZANTINIB
     Dosage: 20 MG EVERY OTHER DAY
     Route: 048
     Dates: start: 20250322, end: 20250603
  7. NIVOLUMAB [Concomitant]
     Active Substance: NIVOLUMAB
     Dosage: 480 MG
     Dates: start: 20240917
  8. NIVOLUMAB [Concomitant]
     Active Substance: NIVOLUMAB
     Dosage: 480 MG
     Dates: start: 20250211
  9. NIVOLUMAB [Concomitant]
     Active Substance: NIVOLUMAB
     Dosage: 480 MG
     Dates: start: 20250311
  10. NIVOLUMAB [Concomitant]
     Active Substance: NIVOLUMAB
     Dosage: 480 MG
     Dates: start: 20250408
  11. NIVOLUMAB [Concomitant]
     Active Substance: NIVOLUMAB
     Dosage: 480 MG
     Dates: start: 20250506
  12. NIVOLUMAB [Concomitant]
     Active Substance: NIVOLUMAB
     Dosage: 480 MG
     Dates: start: 20250603, end: 20250603
  13. SPIRONOLACTONE [Concomitant]
     Active Substance: SPIRONOLACTONE
     Indication: Oedema peripheral
     Dosage: EVERY OTHER DAY
     Route: 048
     Dates: start: 20241025
  14. NIZORAL [Concomitant]
     Active Substance: KETOCONAZOLE
     Indication: Acrokeratosis paraneoplastica
     Dosage: 1 APPLICATION
     Route: 061
     Dates: start: 20250107
  15. DAFALGAN [Concomitant]
     Active Substance: ACETAMINOPHEN
     Indication: Pyrexia
     Dosage: 1GM, ASNECESSARY
     Route: 048
     Dates: start: 20250311
  16. GLICLAZIDE [Concomitant]
     Active Substance: GLICLAZIDE
     Indication: Hyperglycaemia
     Dosage: 30 MG, BID
     Route: 048
     Dates: start: 20250325, end: 20250405
  17. GLICLAZIDE [Concomitant]
     Active Substance: GLICLAZIDE
     Dosage: 30 MG, TID
     Route: 048
     Dates: start: 20250617
  18. MEDROL [Concomitant]
     Active Substance: METHYLPREDNISOLONE
     Indication: Fine motor skill dysfunction
     Dosage: 32 MG, QD
     Route: 048
     Dates: start: 20250317, end: 20250327
  19. MEDROL [Concomitant]
     Active Substance: METHYLPREDNISOLONE
     Indication: Productive cough
     Dosage: 16 MG, QD
     Route: 048
     Dates: start: 20250328, end: 20250331
  20. MEDROL [Concomitant]
     Active Substance: METHYLPREDNISOLONE
     Indication: Prophylaxis
     Dosage: 8 MG, QD
     Route: 048
     Dates: start: 20250401, end: 20250403
  21. MEDROL [Concomitant]
     Active Substance: METHYLPREDNISOLONE
     Dosage: 4 MG, QD
     Route: 048
     Dates: start: 20250404, end: 20250405
  22. MEDROL [Concomitant]
     Active Substance: METHYLPREDNISOLONE
     Dosage: 16 MG, QD
     Route: 048
     Dates: start: 20250415, end: 20250422
  23. MEDROL [Concomitant]
     Active Substance: METHYLPREDNISOLONE
     Dosage: 8 MG, QD
     Route: 048
     Dates: start: 20250423, end: 20250428
  24. MEDROL [Concomitant]
     Active Substance: METHYLPREDNISOLONE
     Dosage: 32 MG, QD
     Route: 048
     Dates: start: 20250617, end: 20250620
  25. MEDROL [Concomitant]
     Active Substance: METHYLPREDNISOLONE
     Dosage: 16 MG, QD
     Route: 048
     Dates: start: 20250621, end: 20250630
  26. MEDROL [Concomitant]
     Active Substance: METHYLPREDNISOLONE
     Dosage: 24 MG, QD
     Route: 048
     Dates: start: 20250701
  27. AUGMENTIN [Concomitant]
     Active Substance: AMOXICILLIN\CLAVULANATE POTASSIUM
     Indication: Productive cough
     Dosage: 875 MG, BID
     Route: 048
     Dates: start: 20250422, end: 20250429
  28. ARANESP 500 [Concomitant]
     Indication: Anaemia
     Dosage: 1 OTHER SYRINGE AMPULE, ONCE PER MONTH
     Route: 042
     Dates: start: 20250603
  29. ARANESP 500 [Concomitant]
     Indication: Chronic kidney disease
  30. AMOXICILLIN\CLAVULANATE POTASSIUM [Concomitant]
     Active Substance: AMOXICILLIN\CLAVULANATE POTASSIUM
     Indication: Infection
     Dosage: 3 TIMES PER DAY
     Route: 048
     Dates: start: 20250612, end: 20250617
  31. Packed cell [Concomitant]
     Indication: Anaemia
     Dosage: 1 BLOOD BAG
     Route: 042
     Dates: start: 20250617, end: 20250617

REACTIONS (10)
  - Hepatitis [Recovered/Resolved]
  - Pancreatitis [Recovered/Resolved]
  - Reticular erythematous mucinosis [Recovered/Resolved]
  - Eosinophilia [Recovered/Resolved]
  - Blood creatinine increased [Not Recovered/Not Resolved]
  - Back pain [Recovered/Resolved]
  - Gamma-glutamyltransferase increased [Not Recovered/Not Resolved]
  - Palmar-plantar erythrodysaesthesia syndrome [Recovered/Resolved]
  - Palmar-plantar erythrodysaesthesia syndrome [Recovered/Resolved with Sequelae]
  - Rash [Recovered/Resolved with Sequelae]

NARRATIVE: CASE EVENT DATE: 20240906
